FAERS Safety Report 20713669 (Version 1)
Quarter: 2022Q2

REPORT INFORMATION
  Report Type: Report from Study
  Country: US (occurrence: US)
  Receive Date: 20220415
  Receipt Date: 20220415
  Transmission Date: 20220721
  Serious: Yes (Hospitalization, Other)
  Sender: FDA-Public Use
  Company Number: US-TAKEDA-2022TUS023288

PATIENT
  Sex: Male

DRUGS (4)
  1. TEDUGLUTIDE [Suspect]
     Active Substance: TEDUGLUTIDE
     Indication: Short-bowel syndrome
     Dosage: .110 MILLILITER, QD
     Route: 050
     Dates: start: 20220224
  2. TEDUGLUTIDE [Suspect]
     Active Substance: TEDUGLUTIDE
     Indication: Short-bowel syndrome
     Dosage: .110 MILLILITER, QD
     Route: 050
     Dates: start: 20220224
  3. TEDUGLUTIDE [Suspect]
     Active Substance: TEDUGLUTIDE
     Indication: Short-bowel syndrome
     Dosage: .110 MILLILITER, QD
     Route: 050
     Dates: start: 20220224
  4. TEDUGLUTIDE [Suspect]
     Active Substance: TEDUGLUTIDE
     Indication: Short-bowel syndrome
     Dosage: .110 MILLILITER, QD
     Route: 050
     Dates: start: 20220224

REACTIONS (5)
  - Gastrointestinal haemorrhage [Unknown]
  - Gastroenteritis norovirus [Unknown]
  - Syncope [Unknown]
  - Haematochezia [Unknown]
  - Haemoglobin decreased [Unknown]
